FAERS Safety Report 10442572 (Version 1)
Quarter: 2014Q3

REPORT INFORMATION
  Report Type: Spontaneous
  Country: US (occurrence: None)
  Receive Date: 20140908
  Receipt Date: 20140908
  Transmission Date: 20150326
  Serious: Yes (Life-Threatening)
  Sender: FDA-Public Use
  Company Number: FK201403559

PATIENT
  Age: 25 Year
  Sex: Male
  Weight: 63 kg

DRUGS (9)
  1. PROPOFOL (MANUFACTURER UNKNOWN) (PROPOFOL) (PROPOFOL) [Suspect]
     Active Substance: PROPOFOL
     Indication: SEDATION
  2. LABETALOL [Concomitant]
     Active Substance: LABETALOL\LABETALOL HYDROCHLORIDE
  3. NIFEDIPINE. [Concomitant]
     Active Substance: NIFEDIPINE
  4. HYDRALAZINE [Concomitant]
     Active Substance: HYDRALAZINE HYDROCHLORIDE
  5. BUPIVACAINE (MANUFACTURER UNKNOWN) (BUPIVACAINE) (BUPIVACAINE) [Suspect]
     Active Substance: BUPIVACAINE
     Indication: NERVE BLOCK
     Dosage: 5 ML, 3 DOSES OF 5ML EACH= 15 ML TOTAL, SUPRACLAVICULAR NERVE BLOCK?15 ML, UNK, INTRO THE DISTRIBUTION OF INTERCOSTAL BRACHIAL NERVE IN UPPER ARM
  6. CINACALCET [Concomitant]
     Active Substance: CINACALCET
  7. WARFARIN [Concomitant]
     Active Substance: WARFARIN
  8. MINOXIDIL. [Concomitant]
     Active Substance: MINOXIDIL
  9. LISINOPRIL. [Concomitant]
     Active Substance: LISINOPRIL

REACTIONS (4)
  - Dialysis [None]
  - Brachiocephalic vein stenosis [None]
  - Jugular vein thrombosis [None]
  - Superior vena cava syndrome [None]
